FAERS Safety Report 9885168 (Version 2)
Quarter: 2014Q3

REPORT INFORMATION
  Report Type: Spontaneous
  Country: US (occurrence: US)
  Receive Date: 20140210
  Receipt Date: 20140825
  Transmission Date: 20150326
  Serious: Yes (Hospitalization, Other)
  Sender: FDA-Public Use
  Company Number: US-009507513-1402USA003473

PATIENT
  Sex: Female
  Weight: 71.11 kg

DRUGS (1)
  1. NUVARING [Suspect]
     Active Substance: ETHINYL ESTRADIOL\ETONOGESTREL
     Indication: MENOPAUSE
     Dosage: 0.12-0.015 MG/24 HR, 1 RING X 3 WEEKS, REMOVE FOR 7 DAYS, REPLACE
     Route: 067
     Dates: start: 20120809, end: 20120921

REACTIONS (6)
  - Back pain [Unknown]
  - Pulmonary embolism [Unknown]
  - Deep vein thrombosis [Unknown]
  - Heart rate decreased [Recovering/Resolving]
  - Aortic stenosis [Unknown]
  - Off label use [Recovered/Resolved]

NARRATIVE: CASE EVENT DATE: 20120809
